FAERS Safety Report 22825798 (Version 2)
Quarter: 2023Q4

REPORT INFORMATION
  Report Type: Spontaneous
  Country: BR (occurrence: BR)
  Receive Date: 20230816
  Receipt Date: 20231113
  Transmission Date: 20240109
  Serious: Yes (Other)
  Sender: FDA-Public Use
  Company Number: BR-CHEPLA-2023010142

PATIENT
  Sex: Female
  Weight: 49 kg

DRUGS (8)
  1. CLONAZEPAM [Suspect]
     Active Substance: CLONAZEPAM
     Indication: Insomnia
     Dosage: 10 DROPS EVERY NIGHT BEFORE GOING TO BED?DAILY DOSE: 10 DROP
     Route: 048
     Dates: start: 2020
  2. AMLODIPINE BESYLATE\INDAPAMIDE\PERINDOPRIL ARGININE [Concomitant]
     Active Substance: AMLODIPINE BESYLATE\INDAPAMIDE\PERINDOPRIL ARGININE
     Dosage: DAILY DOSE: 1 DOSAGE FORM
     Route: 048
     Dates: start: 1993
  3. PURAN [Concomitant]
     Active Substance: LEVOTHYROXINE SODIUM
     Indication: Hypertension
     Dosage: ONGOING?DAILY DOSE: 1 DOSAGE FORM
     Dates: start: 2003
  4. PURAN [Concomitant]
     Active Substance: LEVOTHYROXINE SODIUM
     Indication: Hypothyroidism
     Dosage: ONGOING?DAILY DOSE: 1 DOSAGE FORM
     Dates: start: 2003
  5. Lantus- Solostar [Concomitant]
     Indication: Type 2 diabetes mellitus
     Dosage: ONGOING?DAILY DOSE: 25 MILLILITRE
     Route: 058
     Dates: start: 202302
  6. GLICLAZIDE [Concomitant]
     Active Substance: GLICLAZIDE
     Indication: Type 2 diabetes mellitus
     Route: 048
     Dates: end: 202302
  7. TIMOLOL MALEATE [Concomitant]
     Active Substance: TIMOLOL MALEATE
     Indication: Glaucoma
     Dosage: OFTALMIC DROPS, 1 EACH EYE FOR EVERY 12 HOURS, ONGOING
     Route: 047
     Dates: start: 2018
  8. TIMOLOL MALEATE [Concomitant]
     Active Substance: TIMOLOL MALEATE
     Indication: Glaucoma
     Dosage: OFTALMIC DROPS, 2 EACH EYE FOR EVERY 12 HOURS
     Route: 047
     Dates: start: 2018

REACTIONS (10)
  - Diabetic retinopathy [Not Recovered/Not Resolved]
  - Diabetes mellitus [Unknown]
  - Glaucoma [Not Recovered/Not Resolved]
  - Anaemia [Not Recovered/Not Resolved]
  - Yellow skin [Not Recovered/Not Resolved]
  - Ovarian cyst [Not Recovered/Not Resolved]
  - Product use in unapproved indication [Not Recovered/Not Resolved]
  - Abdominal distension [Not Recovered/Not Resolved]
  - Underweight [Not Recovered/Not Resolved]
  - Depression [Not Recovered/Not Resolved]

NARRATIVE: CASE EVENT DATE: 20200101
